FAERS Safety Report 23378297 (Version 1)
Quarter: 2024Q1

REPORT INFORMATION
  Report Type: Spontaneous
  Country: None (occurrence: DE)
  Receive Date: 20240108
  Receipt Date: 20240108
  Transmission Date: 20240410
  Serious: No
  Sender: FDA-Public Use
  Company Number: DE-Harrow Eye-2150588

PATIENT
  Age: 26 Year
  Sex: Female

DRUGS (2)
  1. VERKAZIA [Suspect]
     Active Substance: CYCLOSPORINE
     Indication: Ocular hyperaemia
     Route: 047
  2. Softacort (Hydrocortisone Sodium Phosphate) [Concomitant]

REACTIONS (4)
  - Headache [Not Recovered/Not Resolved]
  - Cardiovascular disorder [Recovered/Resolved]
  - Nausea [Recovered/Resolved]
  - Off label use [None]
